FAERS Safety Report 12492774 (Version 1)
Quarter: 2016Q2

REPORT INFORMATION
  Report Type: Spontaneous
  Country: US (occurrence: US)
  Receive Date: 20160623
  Receipt Date: 20160623
  Transmission Date: 20160815
  Serious: Yes (Death)
  Sender: FDA-Public Use
  Company Number: US-TEVA-671025USA

PATIENT
  Age: 24 Year
  Sex: Female

DRUGS (42)
  1. PROTONIX [Suspect]
     Active Substance: PANTOPRAZOLE SODIUM
     Dosage: AT 1754
     Route: 065
     Dates: start: 20131118, end: 20131118
  2. HYDROMORPHONE [Suspect]
     Active Substance: HYDROMORPHONE
     Dosage: 0029, 0158, AND 0900
     Route: 065
     Dates: start: 20131120
  3. METRONIDAZOLE. [Suspect]
     Active Substance: METRONIDAZOLE
     Route: 065
  4. MIDAZOLAM [Suspect]
     Active Substance: MIDAZOLAM\MIDAZOLAM HYDROCHLORIDE
     Route: 060
  5. ZOFRAN [Suspect]
     Active Substance: ONDANSETRON HYDROCHLORIDE
     Dosage: AT 11 1916
     Route: 065
     Dates: start: 20131118, end: 20131118
  6. DEXTROSE AND SODIUM CHLORIDE [Suspect]
     Active Substance: DEXTROSE MONOHYDRATE\SODIUM CHLORIDE
     Dosage: 5% WITH 1/2 NORMAL SALINE AT 0354
     Route: 065
     Dates: start: 20131119
  7. PROTONIX [Suspect]
     Active Substance: PANTOPRAZOLE SODIUM
     Dosage: AT 1104
     Route: 065
     Dates: start: 20131119
  8. HYDROMORPHONE [Suspect]
     Active Substance: HYDROMORPHONE
     Dosage: AT 1754 AND 2104
     Route: 065
     Dates: start: 20131118, end: 20131118
  9. HYDROMORPHONE [Suspect]
     Active Substance: HYDROMORPHONE
     Dosage: 0022, 0154, 0728,1130, AND 1904
     Route: 065
     Dates: start: 20131119, end: 20131119
  10. NITROGLYCERIN. [Suspect]
     Active Substance: NITROGLYCERIN
     Route: 060
  11. LORAZEPAM. [Suspect]
     Active Substance: LORAZEPAM
     Route: 060
  12. PANTOPRAZOLE [Suspect]
     Active Substance: PANTOPRAZOLE SODIUM
     Route: 065
  13. BD POSTFLUSH/SODIUM CHLORIDE [Suspect]
     Active Substance: SODIUM CHLORIDE
     Dosage: AT 0422, 0516 AND 0829
     Route: 065
     Dates: start: 20131120, end: 20131120
  14. SODIUM BICARBONATE. [Suspect]
     Active Substance: SODIUM BICARBONATE
     Route: 065
  15. SALINE [Suspect]
     Active Substance: SODIUM CHLORIDE
     Route: 065
  16. NEO-SYNEPHRINE [Suspect]
     Active Substance: PHENYLEPHRINE HYDROCHLORIDE
     Route: 060
  17. METOPROLOL. [Suspect]
     Active Substance: METOPROLOL
     Route: 065
  18. ZOFRAN [Suspect]
     Active Substance: ONDANSETRON HYDROCHLORIDE
     Dosage: AT 0445
     Route: 065
     Dates: start: 20131120
  19. ZOSYN [Suspect]
     Active Substance: PIPERACILLIN SODIUM\TAZOBACTAM SODIUM
     Dosage: AT 0500, 1101, 1606 AND 2234
     Route: 065
     Dates: start: 20131119, end: 20131119
  20. DIPHENHYDRAMINE. [Suspect]
     Active Substance: DIPHENHYDRAMINE
     Route: 065
  21. SOLU-MEDROL [Suspect]
     Active Substance: METHYLPREDNISOLONE SODIUM SUCCINATE
     Dosage: 2104
     Route: 065
     Dates: start: 20131118, end: 20131118
  22. SOLU-MEDROL [Suspect]
     Active Substance: METHYLPREDNISOLONE SODIUM SUCCINATE
     Dosage: AT 0526
     Route: 065
     Dates: start: 20131120, end: 20131120
  23. ZOSYN [Suspect]
     Active Substance: PIPERACILLIN SODIUM\TAZOBACTAM SODIUM
     Dosage: AT 0526
     Route: 065
     Dates: start: 20131120
  24. BENADRYL [Suspect]
     Active Substance: DIPHENHYDRAMINE HYDROCHLORIDE
     Dosage: AT 1754
     Route: 065
     Dates: start: 20131118, end: 20131118
  25. METHYLPREDNISOLONE. [Suspect]
     Active Substance: METHYLPREDNISOLONE
     Route: 065
  26. BD POSTFLUSH/SODIUM CHLORIDE [Suspect]
     Active Substance: SODIUM CHLORIDE
     Dosage: AT 2133
     Route: 065
     Dates: start: 20131119, end: 20131119
  27. DILAUDID [Suspect]
     Active Substance: HYDROMORPHONE HYDROCHLORIDE
     Route: 065
  28. CIPRO [Suspect]
     Active Substance: CIPROFLOXACIN HYDROCHLORIDE
     Route: 065
  29. VANCOMYCIN [Suspect]
     Active Substance: VANCOMYCIN
     Route: 060
  30. DOBUTAMINE [Suspect]
     Active Substance: DOBUTAMINE\DOBUTAMINE HYDROCHLORIDE
     Route: 060
  31. DEXTROSE AND SODIUM CHLORIDE [Suspect]
     Active Substance: DEXTROSE MONOHYDRATE\SODIUM CHLORIDE
     Dosage: 5% WITH 1/2 NORMAL SALINE AT 1754
     Route: 065
     Dates: start: 20131118, end: 20131118
  32. SOLU-MEDROL [Suspect]
     Active Substance: METHYLPREDNISOLONE SODIUM SUCCINATE
     Dosage: 0502, 1354, AND 2131
     Route: 065
     Dates: start: 20131119, end: 20131119
  33. LEVOPHED [Suspect]
     Active Substance: NOREPINEPHRINE BITARTRATE
     Route: 060
  34. SEPTRA [Suspect]
     Active Substance: SULFAMETHOXAZOLE\TRIMETHOPRIM
     Route: 060
  35. MORPHINE [Suspect]
     Active Substance: MORPHINE
     Route: 060
  36. ONDANSETRON [Suspect]
     Active Substance: ONDANSETRON
     Route: 065
  37. PIPERACILLIN AND TAZOBACTAM [Suspect]
     Active Substance: PIPERACILLIN SODIUM\TAZOBACTAM SODIUM
     Route: 065
  38. ZOSYN [Suspect]
     Active Substance: PIPERACILLIN SODIUM\TAZOBACTAM SODIUM
     Dosage: AT 1754 AND 2254
     Route: 065
     Dates: start: 20131118, end: 20131118
  39. BENADRYL [Suspect]
     Active Substance: DIPHENHYDRAMINE HYDROCHLORIDE
     Dosage: AT 0022, 0728, AND 1139
     Route: 065
     Dates: start: 20131119
  40. MAGNESIUM SULFATE. [Suspect]
     Active Substance: MAGNESIUM SULFATE
     Dosage: AT 1926
     Route: 065
     Dates: start: 20131118
  41. CEFTRIAXONE. [Suspect]
     Active Substance: CEFTRIAXONE
     Route: 065
  42. DOPAMINE [Suspect]
     Active Substance: DOPAMINE\DOPAMINE HYDROCHLORIDE
     Route: 060

REACTIONS (2)
  - Respiratory disorder [Fatal]
  - Product contamination physical [Fatal]

NARRATIVE: CASE EVENT DATE: 20131120
